FAERS Safety Report 26200647 (Version 1)
Quarter: 2025Q4

REPORT INFORMATION
  Report Type: Spontaneous
  Country: US (occurrence: US)
  Receive Date: 20251225
  Receipt Date: 20251225
  Transmission Date: 20260118
  Serious: Yes (Other)
  Sender: AMGEN
  Company Number: US-AMGEN-USASP2025251317

PATIENT
  Age: 54 Year
  Sex: Male

DRUGS (8)
  1. PREDNISONE [Suspect]
     Active Substance: PREDNISONE
     Indication: Syphilis
     Dosage: UNK
     Route: 048
  2. PREDNISONE [Suspect]
     Active Substance: PREDNISONE
     Dosage: UNK, TAPERED OVER THE NEXT 6 MONTHS
     Route: 048
  3. CEFTAZIDIME [Concomitant]
     Active Substance: CEFTAZIDIME
  4. VANCOMYCIN [Concomitant]
     Active Substance: VANCOMYCIN
  5. VALACYCLOVIR [Concomitant]
     Active Substance: VALACYCLOVIR HYDROCHLORIDE
     Route: 048
  6. SULFAMETHOXAZOLE AND TRIMETHOPRIM [Concomitant]
     Active Substance: SULFAMETHOXAZOLE\TRIMETHOPRIM
  7. PREDNISOLONE [Concomitant]
     Active Substance: PREDNISOLONE
     Route: 061
  8. CIPROFLOXACIN [Concomitant]
     Active Substance: CIPROFLOXACIN

REACTIONS (4)
  - Tractional retinal detachment [Unknown]
  - Macular fibrosis [Unknown]
  - Corneal lesion [Unknown]
  - Off label use [Unknown]
